FAERS Safety Report 12008789 (Version 1)
Quarter: 2016Q1

REPORT INFORMATION
  Report Type: Spontaneous
  Country: US (occurrence: None)
  Receive Date: 20160203
  Receipt Date: 20160203
  Transmission Date: 20160526
  Serious: Yes (Other)
  Sender: FDA-Public Use
  Company Number: None

PATIENT
  Age: 39 Year
  Sex: Male
  Weight: 113.4 kg

DRUGS (1)
  1. CODEINE SULFATE. [Suspect]
     Active Substance: CODEINE SULFATE
     Indication: HEADACHE
     Route: 048

REACTIONS (2)
  - Incorrect dose administered [None]
  - Drug effect decreased [None]

NARRATIVE: CASE EVENT DATE: 20160201
